FAERS Safety Report 9219547 (Version 1)
Quarter: 2013Q2

REPORT INFORMATION
  Report Type: Spontaneous
  Country: US (occurrence: None)
  Receive Date: 20130408
  Receipt Date: 20130408
  Transmission Date: 20140414
  Serious: Yes (Other)
  Sender: FDA-Public Use
  Company Number: None

PATIENT
  Age: 70 Year
  Sex: Female
  Weight: 68.04 kg

DRUGS (1)
  1. ZOLPIDEM TARTRATE [Suspect]
     Indication: INSOMNIA
     Dosage: 1 TABLET AT BEDTIME PERIODIC
     Route: 048
     Dates: start: 20130328, end: 20130404

REACTIONS (11)
  - Dizziness [None]
  - Asthenia [None]
  - Disorientation [None]
  - Malaise [None]
  - Product quality issue [None]
  - Impaired driving ability [None]
  - Balance disorder [None]
  - Fatigue [None]
  - Impaired work ability [None]
  - Decreased appetite [None]
  - Product substitution issue [None]
